FAERS Safety Report 17077168 (Version 1)
Quarter: 2019Q4

REPORT INFORMATION
  Report Type: Spontaneous
  Country: US (occurrence: US)
  Receive Date: 20191126
  Receipt Date: 20191126
  Transmission Date: 20200122
  Serious: Yes (Death, Hospitalization, Other)
  Sender: FDA-Public Use
  Company Number: US-SA-2019SA327034

PATIENT
  Age: 59 Year
  Sex: Female

DRUGS (1)
  1. LANTUS SOLOSTAR [Suspect]
     Active Substance: INSULIN GLARGINE
     Indication: TYPE 2 DIABETES MELLITUS
     Dosage: 50 U, QD
     Route: 058
     Dates: start: 20190315

REACTIONS (7)
  - Sepsis [Fatal]
  - Diabetes mellitus inadequate control [Fatal]
  - Encephalopathy [Unknown]
  - Cerebrovascular accident [Fatal]
  - Acute kidney injury [Unknown]
  - Respiratory failure [Fatal]
  - Diabetic ketoacidosis [Fatal]
